FAERS Safety Report 9035915 (Version 1)
Quarter: 2013Q1

REPORT INFORMATION
  Report Type: Report from Study
  Country: US (occurrence: US)
  Receive Date: 20130129
  Receipt Date: 20130129
  Transmission Date: 20140127
  Serious: No
  Sender: FDA-Public Use
  Company Number: US-ABBOTT-12P-163-0915310-00

PATIENT
  Age: 58 Year
  Sex: Male

DRUGS (7)
  1. HUMIRA 40 MG/0.8 ML PEN [Suspect]
     Indication: CROHN^S DISEASE
     Dates: start: 20111209
  2. VICODIN [Concomitant]
     Indication: BACK DISORDER
     Route: 048
  3. VICODIN [Concomitant]
     Indication: MUSCULOSKELETAL DISCOMFORT
  4. ULTRAM [Concomitant]
     Indication: BACK DISORDER
     Route: 048
  5. ULTRAM [Concomitant]
     Indication: INTERVERTEBRAL DISC DISORDER
  6. PREVACID [Concomitant]
     Indication: GASTROOESOPHAGEAL REFLUX DISEASE
     Route: 048
  7. PRAVASTATIN [Concomitant]
     Indication: BLOOD CHOLESTEROL INCREASED
     Route: 048

REACTIONS (3)
  - Injection site haematoma [Not Recovered/Not Resolved]
  - Pain [Not Recovered/Not Resolved]
  - Pain [Not Recovered/Not Resolved]
